FAERS Safety Report 23294829 (Version 1)
Quarter: 2023Q4

REPORT INFORMATION
  Report Type: Spontaneous
  Country: CN (occurrence: CN)
  Receive Date: 20231213
  Receipt Date: 20231213
  Transmission Date: 20240110
  Serious: Yes (Other)
  Sender: FDA-Public Use
  Company Number: CN-009507513-2312CHN003083

PATIENT
  Age: 88 Year
  Sex: Female

DRUGS (1)
  1. STEGLATRO [Suspect]
     Active Substance: ERTUGLIFLOZIN PIDOLATE
     Indication: Cardiac function test abnormal
     Dosage: 5 MG, QD
     Route: 048
     Dates: start: 20231129, end: 20231203

REACTIONS (4)
  - Perineal ulceration [Recovering/Resolving]
  - Pruritus genital [Recovering/Resolving]
  - Perineal erythema [Unknown]
  - Product use in unapproved indication [Unknown]

NARRATIVE: CASE EVENT DATE: 20231129
